FAERS Safety Report 5781076-6 (Version None)
Quarter: 2008Q2

REPORT INFORMATION
  Report Type: 
  Country: None (occurrence: None)
  Receive Date: 20080620
  Receipt Date: 20080609
  Transmission Date: 20081010
  Serious: Yes (Other)
  Sender: FDA-Public Use
  Company Number: GB-PFIZER INC-2008049902

PATIENT
  Sex: Male

DRUGS (2)
  1. LYRICA [Suspect]
     Dosage: FREQ:DAILY
     Route: 048
  2. DICLOFENAC SODIUM [Concomitant]

REACTIONS (9)
  - CONFUSIONAL STATE [None]
  - CONSTIPATION [None]
  - COUGH [None]
  - DEAFNESS UNILATERAL [None]
  - DIZZINESS [None]
  - DRY MOUTH [None]
  - GAIT DISTURBANCE [None]
  - MENTAL IMPAIRMENT [None]
  - TINNITUS [None]
